FAERS Safety Report 19508114 (Version 1)
Quarter: 2021Q3

REPORT INFORMATION
  Report Type: Spontaneous
  Country: US (occurrence: US)
  Receive Date: 20210708
  Receipt Date: 20210708
  Transmission Date: 20211014
  Serious: Yes (Other)
  Sender: FDA-Public Use
  Company Number: US-PFIZER INC-2021790566

PATIENT
  Age: 72 Year
  Sex: Male

DRUGS (1)
  1. DAURISMO [Suspect]
     Active Substance: GLASDEGIB
     Dosage: 100 MG

REACTIONS (3)
  - Cyanosis [Unknown]
  - Gait disturbance [Unknown]
  - Product dose omission issue [Unknown]
